FAERS Safety Report 9127648 (Version 1)
Quarter: 2013Q1

REPORT INFORMATION
  Report Type: Spontaneous
  Country: SE (occurrence: SE)
  Receive Date: 20130122
  Receipt Date: 20130122
  Transmission Date: 20140127
  Serious: Yes (Hospitalization)
  Sender: FDA-Public Use
  Company Number: SE-TEVA-381512ISR

PATIENT
  Sex: Female

DRUGS (13)
  1. DOXYCYKLIN [Suspect]
     Indication: INFECTION
  2. WARAN [Interacting]
     Indication: ATRIAL FIBRILLATION
     Route: 048
  3. FLAGYL [Interacting]
     Indication: INFECTION
     Route: 048
  4. VAGIFEM [Concomitant]
  5. OPTINATE [Concomitant]
  6. METOPROLOL/FELODIPIN [Concomitant]
  7. SIMVASTATIN [Concomitant]
  8. METOTREXATE [Concomitant]
  9. KALCIPOS-D [Concomitant]
  10. LAXIRIVA [Concomitant]
  11. FOLACIN [Concomitant]
  12. PREDNISOLONE [Concomitant]
  13. XERODENT [Concomitant]

REACTIONS (3)
  - International normalised ratio increased [Recovered/Resolved]
  - Constipation [Unknown]
  - Drug interaction [Unknown]
